FAERS Safety Report 9835291 (Version 1)
Quarter: 2014Q1

REPORT INFORMATION
  Report Type: Spontaneous
  Country: US (occurrence: US)
  Receive Date: 20140122
  Receipt Date: 20140122
  Transmission Date: 20141002
  Serious: No
  Sender: FDA-Public Use
  Company Number: US-BRISTOL-MYERS SQUIBB COMPANY-19921717

PATIENT
  Age: 57 Year
  Sex: Male
  Weight: 70.29 kg

DRUGS (11)
  1. ELIQUIS [Suspect]
     Indication: ATRIAL FIBRILLATION
     Dates: start: 201308
  2. METOPROLOL [Suspect]
     Dosage: 50MG,75MG AND 100MG
  3. AMIODARONE [Concomitant]
     Indication: CARDIOVERSION
  4. KLONOPIN [Concomitant]
  5. PATANASE [Concomitant]
     Dosage: 1 DF : 2 SPRAYS
     Route: 045
  6. AMBIEN [Concomitant]
  7. CALCIUM [Concomitant]
  8. VITAMIN D3 [Concomitant]
  9. MULTIVITAMIN [Concomitant]
  10. VITAMIN C [Concomitant]
  11. DEXLANSOPRAZOLE [Concomitant]

REACTIONS (1)
  - Functional gastrointestinal disorder [Unknown]
